FAERS Safety Report 8445357-X (Version None)
Quarter: 2012Q2

REPORT INFORMATION
  Report Type: 
  Country: None (occurrence: None)
  Receive Date: 20120618
  Receipt Date: 20120402
  Transmission Date: 20120825
  Serious: No
  Sender: FDA-Public Use
  Company Number: US-TEVA-330697USA

PATIENT
  Sex: Female
  Weight: 83.99 kg

DRUGS (14)
  1. ALPRAZOLAM [Concomitant]
     Indication: NERVOUSNESS
     Route: 048
  2. MORPHINE SULFATE [Concomitant]
     Indication: PAIN IN EXTREMITY
  3. FENTORA [Suspect]
     Indication: PAIN IN EXTREMITY
  4. MORPHINE SULFATE [Concomitant]
     Indication: NECK PAIN
  5. OXYCODONE HCL [Concomitant]
     Indication: BACK PAIN
     Dosage: 180 MILLIGRAM;
     Route: 048
  6. OXYCODONE HCL [Concomitant]
     Indication: NECK PAIN
  7. MORPHINE SULFATE [Concomitant]
     Indication: BACK PAIN
     Dosage: 100 MILLIGRAM;
     Route: 048
  8. OXYCODONE HCL [Concomitant]
     Indication: PAIN IN EXTREMITY
  9. PANTOPRAZOLE [Concomitant]
     Indication: ULCER
     Route: 048
     Dates: start: 20111201, end: 20120101
  10. FAMOTIDINE [Concomitant]
     Indication: ULCER
     Route: 048
  11. CARISOPRODOL [Concomitant]
     Indication: MUSCLE RELAXANT THERAPY
     Dosage: 350 UNKNOWN;
     Route: 048
  12. LANSOPRAZOLE [Concomitant]
     Indication: ULCER
     Route: 048
     Dates: start: 20111201, end: 20120101
  13. FENTORA [Suspect]
     Indication: BACK PAIN
     Route: 002
     Dates: start: 20080101, end: 20120301
  14. FENTORA [Suspect]
     Indication: NECK PAIN

REACTIONS (10)
  - NASOPHARYNGITIS [None]
  - RASH [None]
  - OFF LABEL USE [None]
  - PAIN [None]
  - DIARRHOEA [None]
  - NAUSEA [None]
  - HYPERHIDROSIS [None]
  - SNEEZING [None]
  - SKIN DEPIGMENTATION [None]
  - CHILLS [None]
